FAERS Safety Report 6501997-6 (Version None)
Quarter: 2009Q4

REPORT INFORMATION
  Report Type: 
  Country: None (occurrence: None)
  Receive Date: 20091210
  Receipt Date: 20091130
  Transmission Date: 20100525
  Serious: Yes (Other)
  Sender: FDA-Public Use
  Company Number: THYM-1001294

PATIENT
  Age: 52 Year
  Sex: Male

DRUGS (7)
  1. THYMOGLOBULINE          (ANTI-THYMOCYTE GLOBULIN (RABBIT)) POWDER  SOL [Suspect]
     Indication: RENAL TRANSPLANT
     Dosage: 75 MG, QD, INTRAVENOUS
     Route: 042
     Dates: start: 20091021, end: 20091022
  2. CELLCEPT [Concomitant]
  3. SOLUPRED (PREDNISOLONE SODIUM SULFOBENZOATE) [Concomitant]
  4. AMLODIPINE BESYLATE [Concomitant]
  5. POLARAMINE [Concomitant]
  6. SOLU-MEDROL [Concomitant]
  7. OMEPRAZOLE [Concomitant]

REACTIONS (4)
  - BLOOD CREATINE INCREASED [None]
  - DYSPNOEA [None]
  - HAEMOGLOBIN DECREASED [None]
  - HYPERTHERMIA [None]
